FAERS Safety Report 4443528-0 (Version None)
Quarter: 2004Q3

REPORT INFORMATION
  Report Type: 
  Country: None (occurrence: None)
  Receive Date: 20040901
  Receipt Date: 20040820
  Transmission Date: 20050211
  Serious: Yes (Other)
  Sender: FDA-Public Use
  Company Number: 200419099BWH

PATIENT
  Age: 65 Year
  Sex: Male

DRUGS (2)
  1. LEVITRA [Suspect]
     Indication: ERECTILE DYSFUNCTION
     Dosage: 5 MG, Q1MON, ORAL
     Route: 048
     Dates: start: 20030701, end: 20040610
  2. LIPITOR [Concomitant]

REACTIONS (3)
  - ARTHRALGIA [None]
  - MYOSITIS [None]
  - SCIATICA [None]
